FAERS Safety Report 7288767-9 (Version None)
Quarter: 2011Q1

REPORT INFORMATION
  Report Type: 
  Country: None (occurrence: None)
  Receive Date: 20110201
  Receipt Date: 20110118
  Transmission Date: 20110831
  Serious: Yes (Other)
  Sender: FDA-Public Use
  Company Number: 2011SP002938

PATIENT
  Age: 21 Year
  Sex: Female

DRUGS (1)
  1. IMPLANON [Suspect]
     Indication: CONTRACEPTION
     Dates: start: 20101108

REACTIONS (7)
  - NAUSEA [None]
  - DIZZINESS [None]
  - AMENORRHOEA [None]
  - SYNCOPE [None]
  - DECREASED APPETITE [None]
  - WEIGHT DECREASED [None]
  - INSOMNIA [None]
